FAERS Safety Report 23196886 (Version 2)
Quarter: 2024Q1

REPORT INFORMATION
  Report Type: Spontaneous
  Country: US (occurrence: None)
  Receive Date: 20231117
  Receipt Date: 20240115
  Transmission Date: 20240410
  Serious: Yes (Other)
  Sender: FDA-Public Use
  Company Number: 2023A254723

PATIENT

DRUGS (1)
  1. BYDUREON BCISE [Suspect]
     Active Substance: EXENATIDE
     Dosage: 2.0MG UNKNOWN

REACTIONS (6)
  - Pain [Unknown]
  - Dysstasia [Unknown]
  - Post procedural complication [Unknown]
  - Wrong technique in device usage process [Unknown]
  - Device leakage [Unknown]
  - Device difficult to use [Unknown]
